FAERS Safety Report 9250298 (Version 1)
Quarter: 2013Q2

REPORT INFORMATION
  Report Type: Spontaneous
  Country: US (occurrence: None)
  Receive Date: 20130419
  Receipt Date: 20130419
  Transmission Date: 20140414
  Serious: Yes (Hospitalization)
  Sender: FDA-Public Use
  Company Number: None

PATIENT
  Age: 61 Year
  Sex: Female
  Weight: 81.8 kg

DRUGS (1)
  1. VORICONAZOLE [Suspect]
     Route: 048

REACTIONS (4)
  - Hallucination [None]
  - Liver function test abnormal [None]
  - Nausea [None]
  - Vomiting [None]
